FAERS Safety Report 5402663-0 (Version None)
Quarter: 2007Q3

REPORT INFORMATION
  Report Type: 
  Country: None (occurrence: None)
  Receive Date: 20070801
  Receipt Date: 20070724
  Transmission Date: 20080115
  Serious: Yes (Death)
  Sender: FDA-Public Use
  Company Number: A0644319A

PATIENT
  Age: 56 Year
  Sex: Female
  Weight: 57.7 kg

DRUGS (22)
  1. ADVAIR DISKUS 100/50 [Suspect]
     Indication: ASTHMA
     Dosage: 1PUFF TWICE PER DAY
     Route: 055
     Dates: start: 20051219, end: 20051219
  2. CARDIAC MEDICATION [Concomitant]
  3. PACEMAKER PLACEMENT [Concomitant]
  4. LEVOPHED [Concomitant]
  5. ATROVENT [Concomitant]
     Dates: start: 20051219
  6. NYSTATIN [Concomitant]
  7. XOPENEX [Concomitant]
  8. GUAIFENESIN [Concomitant]
  9. RESTORIL [Concomitant]
  10. HEPARIN [Concomitant]
  11. LOVENOX [Concomitant]
  12. LIPITOR [Concomitant]
  13. ZOSYN [Concomitant]
  14. COREG [Concomitant]
  15. MAGNESIUM SULFATE [Concomitant]
  16. PANTOPRAZOLE SODIUM [Concomitant]
  17. PLAVIX [Concomitant]
  18. PROTONIX [Concomitant]
  19. AMIODARONE HCL [Concomitant]
  20. ENALAPRIL MALEATE [Concomitant]
  21. LASIX [Concomitant]
  22. K-DUR 10 [Concomitant]

REACTIONS (9)
  - BRONCHOSPASM [None]
  - CARDIO-RESPIRATORY ARREST [None]
  - CARDIOGENIC SHOCK [None]
  - CORONARY ARTERY DISEASE [None]
  - MITRAL VALVE INCOMPETENCE [None]
  - MYOCARDIAL INFARCTION [None]
  - RESPIRATORY ARREST [None]
  - RESPIRATORY DISTRESS [None]
  - RESPIRATORY FAILURE [None]
